FAERS Safety Report 17909054 (Version 8)
Quarter: 2021Q2

REPORT INFORMATION
  Report Type: Report from Study
  Country: None (occurrence: NL)
  Receive Date: 20200617
  Receipt Date: 20210624
  Transmission Date: 20210717
  Serious: Yes (Hospitalization, Other)
  Sender: FDA-Public Use
  Company Number: NL-ABBVIE-19S-114-2665694-00

PATIENT
  Age: 71 Year
  Sex: Male
  Weight: 69 kg

DRUGS (20)
  1. DUODOPA [Suspect]
     Active Substance: CARBIDOPA\LEVODOPA
     Dosage: MD: 14.5 ML, CD: 4.9 ML/HR, ED: 0.0 ML
     Route: 050
     Dates: start: 20190121
  2. CLOZAPINE. [Concomitant]
     Active Substance: CLOZAPINE
     Indication: PARKINSON^S DISEASE
  3. GLYCOPYRRONIUM [Concomitant]
     Active Substance: GLYCOPYRRONIUM
     Indication: SALIVARY HYPERSECRETION
  4. DUODOPA [Suspect]
     Active Substance: CARBIDOPA\LEVODOPA
     Dosage: MD: 14.5, CD: 4.9, ED: 0.0 24 HOUR ADMINISTRATION, 20 MG/ML 5 MG/ML
     Route: 050
     Dates: start: 2019
  5. DUODOPA [Suspect]
     Active Substance: CARBIDOPA\LEVODOPA
     Dosage: MD: 14,5 ML CD: 4,9 ML/H ED: 2,0 ML WITH ED BLOCKAGE OF 10 HOURS.
     Route: 050
  6. CLOZAPINE. [Concomitant]
     Active Substance: CLOZAPINE
     Indication: ABNORMAL DREAMS
     Dates: start: 2021
  7. CLONAZEPAM. [Concomitant]
     Active Substance: CLONAZEPAM
     Indication: PRODUCT USED FOR UNKNOWN INDICATION
  8. DUODOPA [Suspect]
     Active Substance: CARBIDOPA\LEVODOPA
     Dosage: MD: 14,5 ML CD: 4,7 ML/H ED: 2,0 ML
     Route: 050
  9. NEUPRO [Concomitant]
     Active Substance: ROTIGOTINE
  10. DUODOPA [Suspect]
     Active Substance: CARBIDOPA\LEVODOPA
     Dosage: CD: 5.3 ND 2.0
     Route: 050
     Dates: start: 2019, end: 2019
  11. DUODOPA [Suspect]
     Active Substance: CARBIDOPA\LEVODOPA
     Dosage: MD: 14,5 ML CD: 4,9 ML/H ED: 2,0 ML WITH ED BLOCKAGE OF 10 HOURS.
     Route: 050
  12. MOVICOLON [Concomitant]
     Active Substance: POLYETHYLENE GLYCOL 3350\POTASSIUM CHLORIDE\SODIUM BICARBONATE\SODIUM CHLORIDE
     Route: 050
  13. DUODOPA [Suspect]
     Active Substance: CARBIDOPA\LEVODOPA
     Indication: PARKINSON^S DISEASE
     Dosage: CD: 4.9
     Route: 050
     Dates: start: 20190121, end: 2019
  14. NEUPRO [Concomitant]
     Active Substance: ROTIGOTINE
     Dosage: NEUPRO PLASTER
  15. MOVICOLON [Concomitant]
     Active Substance: POLYETHYLENE GLYCOL 3350\POTASSIUM CHLORIDE\SODIUM BICARBONATE\SODIUM CHLORIDE
     Indication: ABNORMAL FAECES
     Dosage: 2 SACHETS
  16. ALFUZOSINE [Concomitant]
     Active Substance: ALFUZOSIN HYDROCHLORIDE
     Indication: INCONTINENCE
  17. DUODOPA [Suspect]
     Active Substance: CARBIDOPA\LEVODOPA
     Dosage: MD: 14.5 ML, CD: 4.9 ML/HR, ED: 0.0 ML
     Route: 050
  18. NEUPRO [Concomitant]
     Active Substance: ROTIGOTINE
     Indication: PARKINSON^S DISEASE
     Dosage: NEUPRO PLASTER
  19. NEUPRO [Concomitant]
     Active Substance: ROTIGOTINE
  20. MADOPAR HBS [Concomitant]
     Active Substance: BENSERAZIDE HYDROCHLORIDE\LEVODOPA
     Indication: PRODUCT USED FOR UNKNOWN INDICATION
     Dosage: 3 CAPSULES.

REACTIONS (79)
  - On and off phenomenon [Not Recovered/Not Resolved]
  - Stoma site hypergranulation [Not Recovered/Not Resolved]
  - Muscle spasms [Not Recovered/Not Resolved]
  - Faeces hard [Recovered/Resolved]
  - Weight decreased [Not Recovered/Not Resolved]
  - Impatience [Unknown]
  - Muscle rigidity [Unknown]
  - Bladder stenosis [Not Recovered/Not Resolved]
  - Pain in extremity [Not Recovered/Not Resolved]
  - Frequent bowel movements [Not Recovered/Not Resolved]
  - Weight decreased [Recovered/Resolved]
  - Diarrhoea [Recovered/Resolved]
  - Fall [Not Recovered/Not Resolved]
  - Grip strength decreased [Not Recovered/Not Resolved]
  - Device difficult to use [Recovered/Resolved]
  - Dysuria [Not Recovered/Not Resolved]
  - Incontinence [Not Recovered/Not Resolved]
  - Dizziness [Not Recovered/Not Resolved]
  - Fear [Unknown]
  - Restlessness [Not Recovered/Not Resolved]
  - Flat affect [Not Recovered/Not Resolved]
  - Mobility decreased [Not Recovered/Not Resolved]
  - Salivary hypersecretion [Not Recovered/Not Resolved]
  - Hallucination [Not Recovered/Not Resolved]
  - Gastrointestinal pain [Unknown]
  - Appetite disorder [Unknown]
  - Screaming [Unknown]
  - Unevaluable event [Unknown]
  - Musculoskeletal stiffness [Recovering/Resolving]
  - Feeling abnormal [Not Recovered/Not Resolved]
  - Gait disturbance [Not Recovered/Not Resolved]
  - Drug ineffective [Not Recovered/Not Resolved]
  - Psychomotor hyperactivity [Not Recovered/Not Resolved]
  - Balance disorder [Not Recovered/Not Resolved]
  - Joint range of motion decreased [Not Recovered/Not Resolved]
  - Urinary retention [Not Recovered/Not Resolved]
  - Diarrhoea [Recovered/Resolved]
  - Parkinson^s disease [Not Recovered/Not Resolved]
  - Pain in extremity [Not Recovered/Not Resolved]
  - Memory impairment [Not Recovered/Not Resolved]
  - Arthralgia [Unknown]
  - Restlessness [Not Recovered/Not Resolved]
  - Malignant melanoma [Not Recovered/Not Resolved]
  - Abnormal behaviour [Not Recovered/Not Resolved]
  - Delusion [Not Recovered/Not Resolved]
  - Stoma site inflammation [Recovered/Resolved]
  - Device issue [Unknown]
  - Device dislocation [Unknown]
  - Abnormal faeces [Recovered/Resolved]
  - Gastrointestinal disorder [Unknown]
  - Haemoglobin decreased [Not Recovered/Not Resolved]
  - Feeding disorder [Recovered/Resolved]
  - Mydriasis [Not Recovered/Not Resolved]
  - Anxiety [Not Recovered/Not Resolved]
  - Stoma site reaction [Recovered/Resolved]
  - Tremor [Not Recovered/Not Resolved]
  - Obsessive-compulsive disorder [Unknown]
  - Fall [Recovered/Resolved]
  - Abnormal dreams [Not Recovered/Not Resolved]
  - Suspiciousness [Not Recovered/Not Resolved]
  - Foreign body in throat [Recovered/Resolved]
  - Weight increased [Recovered/Resolved]
  - Musculoskeletal disorder [Recovering/Resolving]
  - Memory impairment [Not Recovered/Not Resolved]
  - Mobility decreased [Not Recovered/Not Resolved]
  - Pain [Not Recovered/Not Resolved]
  - Freezing phenomenon [Recovered/Resolved]
  - Stoma site discharge [Not Recovered/Not Resolved]
  - General physical health deterioration [Not Recovered/Not Resolved]
  - Clubbing [Not Recovered/Not Resolved]
  - Chills [Unknown]
  - Dystonia [Not Recovered/Not Resolved]
  - Confusional state [Not Recovered/Not Resolved]
  - Unevaluable event [Not Recovered/Not Resolved]
  - Nausea [Not Recovered/Not Resolved]
  - Fine motor skill dysfunction [Not Recovered/Not Resolved]
  - Hypophagia [Recovered/Resolved]
  - Feeling hot [Unknown]
  - Fluid intake reduced [Recovered/Resolved]

NARRATIVE: CASE EVENT DATE: 2019
